FAERS Safety Report 16959744 (Version 2)
Quarter: 2020Q4

REPORT INFORMATION
  Report Type: Spontaneous
  Country: US (occurrence: US)
  Receive Date: 20191025
  Receipt Date: 20201103
  Transmission Date: 20210113
  Serious: No
  Sender: FDA-Public Use
  Company Number: US-ASTRAZENECA-2019SF37924

PATIENT
  Sex: Female

DRUGS (2)
  1. BYDUREON BCISE [Suspect]
     Active Substance: EXENATIDE
     Route: 065
     Dates: start: 201812
  2. METFORMIN [Concomitant]
     Active Substance: METFORMIN HYDROCHLORIDE

REACTIONS (10)
  - Tremor [Not Recovered/Not Resolved]
  - Wrong technique in device usage process [Unknown]
  - Feeling abnormal [Unknown]
  - Product dose omission issue [Not Recovered/Not Resolved]
  - Incorrect dose administered by product [Unknown]
  - Device leakage [Unknown]
  - Injection site mass [Not Recovered/Not Resolved]
  - Circumstance or information capable of leading to medication error [Unknown]
  - Product closure removal difficult [Unknown]
  - Device malfunction [Unknown]

NARRATIVE: CASE EVENT DATE: 20190925
